FAERS Safety Report 8111483-8 (Version None)
Quarter: 2012Q1

REPORT INFORMATION
  Report Type: 
  Country: None (occurrence: None)
  Receive Date: 20120203
  Receipt Date: 20120131
  Transmission Date: 20120608
  Serious: Yes (Other)
  Sender: FDA-Public Use
  Company Number: FR-BRISTOL-MYERS SQUIBB COMPANY-16378507

PATIENT
  Age: 72 Year
  Sex: Male

DRUGS (7)
  1. PANTOPRAZOLE SODIUM [Suspect]
     Indication: HIATUS HERNIA
     Route: 048
  2. ACTONEL [Suspect]
     Indication: OSTEOPOROSIS
     Route: 048
     Dates: end: 20111115
  3. METFORMIN HCL [Suspect]
     Indication: DIABETES MELLITUS
     Route: 048
     Dates: end: 20110909
  4. CALCIUM CARBONATE [Suspect]
     Route: 048
     Dates: end: 20111115
  5. ORENCIA [Suspect]
     Indication: RHEUMATOID ARTHRITIS
     Dosage: NO OF INF:23 INTERRUPTED ON OCT2011; DURATION:22MONTHS
     Route: 042
     Dates: start: 20100112
  6. IRBESARTAN [Suspect]
     Indication: HYPERTENSION
     Route: 048
     Dates: end: 20111115
  7. HYDROCORTISONE [Suspect]
     Indication: RHEUMATOID ARTHRITIS
     Route: 048
     Dates: end: 20111201

REACTIONS (4)
  - CYTOLYTIC HEPATITIS [None]
  - JAUNDICE [None]
  - CHOLESTASIS [None]
  - SHOCK [None]
